FAERS Safety Report 6335910-1 (Version None)
Quarter: 2009Q3

REPORT INFORMATION
  Report Type: 
  Country: None (occurrence: None)
  Receive Date: 20090826
  Receipt Date: 20090427
  Transmission Date: 20100115
  Serious: No
  Sender: FDA-Public Use
  Company Number: 09-057

PATIENT
  Age: 65 Year
  Sex: Female

DRUGS (6)
  1. PREDNISONE [Suspect]
  2. LEVOSALBUTAMOL [Concomitant]
  3. THEOPHYLLINE [Concomitant]
  4. SALBUTAMOL [Concomitant]
  5. BECLOMETHASONE DIPROPIONATE INHALATION [Concomitant]
  6. QVAR 40 [Concomitant]

REACTIONS (1)
  - MUSCULAR WEAKNESS [None]
